FAERS Safety Report 7121454-6 (Version None)
Quarter: 2010Q4

REPORT INFORMATION
  Report Type: 
  Country: None (occurrence: None)
  Receive Date: 20101124
  Receipt Date: 20101117
  Transmission Date: 20110411
  Serious: Yes (Other)
  Sender: FDA-Public Use
  Company Number: CHPA2010US17928

PATIENT
  Sex: Male

DRUGS (1)
  1. EX-LAX REG STR LAX PILLS SENNA (NCH) [Suspect]
     Indication: CONSTIPATION
     Dosage: 30 MG, BID
     Route: 048
     Dates: start: 20100901, end: 20100901

REACTIONS (4)
  - APPENDIX DISORDER [None]
  - DRUG INEFFECTIVE [None]
  - OVERDOSE [None]
  - SURGERY [None]
